FAERS Safety Report 14710370 (Version 1)
Quarter: 2018Q2

REPORT INFORMATION
  Report Type: Spontaneous
  Country: US (occurrence: US)
  Receive Date: 20180403
  Receipt Date: 20180403
  Transmission Date: 20180711
  Serious: No
  Sender: FDA-Public Use
  Company Number: US-ROCHE-2002795

PATIENT
  Age: 65 Year
  Sex: Male

DRUGS (1)
  1. ERIVEDGE [Suspect]
     Active Substance: VISMODEGIB
     Indication: BASAL CELL CARCINOMA
     Dosage: DAILY
     Route: 048
     Dates: start: 20170906

REACTIONS (7)
  - Dysgeusia [Unknown]
  - Dysentery [Unknown]
  - Nausea [Unknown]
  - Constipation [Unknown]
  - Back pain [Unknown]
  - Feeling cold [Unknown]
  - Muscle spasms [Unknown]

NARRATIVE: CASE EVENT DATE: 20170929
